FAERS Safety Report 21825759 (Version 1)
Quarter: 2023Q1

REPORT INFORMATION
  Report Type: Spontaneous
  Country: US (occurrence: US)
  Receive Date: 20230105
  Receipt Date: 20230105
  Transmission Date: 20230418
  Serious: No
  Sender: FDA-Public Use
  Company Number: US-drreddys-SPO/USA/22/0158735

PATIENT
  Age: 61 Year
  Sex: Male

DRUGS (20)
  1. LENALIDOMIDE [Suspect]
     Active Substance: LENALIDOMIDE
     Indication: Plasma cell myeloma
     Dosage: TAKE 1 CAPSULE BY MOUTH EVERY DAY ON DAYS 1-14 IN EACH 21 DAY CYCLE
     Route: 048
     Dates: start: 20221028
  2. VELCADE [Suspect]
     Active Substance: BORTEZOMIB
     Indication: Product used for unknown indication
  3. ALBUTEROL SU AER 108 (90 [Concomitant]
     Indication: Product used for unknown indication
  4. ASPIRIN TBE 81MG [Concomitant]
     Indication: Product used for unknown indication
  5. ATENOLOL TAB 25MG [Concomitant]
     Indication: Product used for unknown indication
  6. ATORVASTATIN [Concomitant]
     Active Substance: ATORVASTATIN
     Indication: Product used for unknown indication
  7. DEXAMETHASONE [Concomitant]
     Active Substance: DEXAMETHASONE
     Indication: Product used for unknown indication
  8. DULOXETINE H CPE 60MG [Concomitant]
     Indication: Product used for unknown indication
  9. FLOMAX [Concomitant]
     Active Substance: TAMSULOSIN HYDROCHLORIDE
     Indication: Product used for unknown indication
  10. FOLIC ACID TAB 1MG [Concomitant]
     Indication: Product used for unknown indication
  11. IRON TAB 325 (65 MG [Concomitant]
     Indication: Product used for unknown indication
  12. LANSOPRAZOLE [Concomitant]
     Active Substance: LANSOPRAZOLE
     Indication: Product used for unknown indication
  13. LISINOPRIL [Concomitant]
     Active Substance: LISINOPRIL
     Indication: Product used for unknown indication
  14. LYRICA [Concomitant]
     Active Substance: PREGABALIN
     Indication: Product used for unknown indication
  15. M RPHINE SUL TAB 30MG [Concomitant]
     Indication: Product used for unknown indication
  16. MORPHINE SUL TBC 30MG [Concomitant]
     Indication: Product used for unknown indication
  17. PLAVIX TAB 75 MG [Concomitant]
     Indication: Product used for unknown indication
  18. TEMAZEPAM CAP 30MG [Concomitant]
     Indication: Product used for unknown indication
  19. TRELEGY ELLI AEP 200-62.5 [Concomitant]
     Indication: Product used for unknown indication
     Dosage: 200-62.5
  20. VITAMIN D3 POW [Concomitant]
     Indication: Product used for unknown indication

REACTIONS (2)
  - Product dose omission issue [Unknown]
  - Product administration interrupted [Unknown]
